FAERS Safety Report 16325276 (Version 1)
Quarter: 2019Q2

REPORT INFORMATION
  Report Type: Spontaneous
  Country: US (occurrence: US)
  Receive Date: 20190516
  Receipt Date: 20190516
  Transmission Date: 20190711
  Serious: Yes (Disabling)
  Sender: FDA-Public Use
  Company Number: None

PATIENT
  Age: 39 Year
  Sex: Female
  Weight: 57.6 kg

DRUGS (7)
  1. IBUPROFEN. [Concomitant]
     Active Substance: IBUPROFEN
  2. PRENATAL VITAMINS [Concomitant]
     Active Substance: VITAMINS
  3. XANAX [Concomitant]
     Active Substance: ALPRAZOLAM
  4. DROSPIRENONE [Concomitant]
     Active Substance: DROSPIRENONE
  5. MONTELUKAST [Suspect]
     Active Substance: MONTELUKAST SODIUM
     Indication: SNEEZING
     Route: 048
     Dates: start: 20190315, end: 20190501
  6. RESTASIS [Concomitant]
     Active Substance: CYCLOSPORINE
  7. ETHINYL ESTRADIOL [Concomitant]
     Active Substance: ETHINYL ESTRADIOL

REACTIONS (3)
  - Panic attack [None]
  - Anxiety [None]
  - Insomnia [None]

NARRATIVE: CASE EVENT DATE: 20190325
